FAERS Safety Report 9954144 (Version 1)
Quarter: 2014Q1

REPORT INFORMATION
  Report Type: Spontaneous
  Country: JP (occurrence: JP)
  Receive Date: 20140304
  Receipt Date: 20140304
  Transmission Date: 20141002
  Serious: Yes (Other)
  Sender: FDA-Public Use
  Company Number: PHHY2014JP022919

PATIENT
  Sex: 0

DRUGS (1)
  1. CEFTRIAXONE SODIUM [Suspect]
     Route: 042

REACTIONS (4)
  - Renal impairment [Unknown]
  - Blood urea increased [Unknown]
  - Hypoalbuminaemia [Unknown]
  - Pleural effusion [Unknown]
